FAERS Safety Report 15767056 (Version 2)
Quarter: 2019Q1

REPORT INFORMATION
  Report Type: Spontaneous
  Country: JP (occurrence: JP)
  Receive Date: 20181227
  Receipt Date: 20190122
  Transmission Date: 20190417
  Serious: No
  Sender: FDA-Public Use
  Company Number: JP-OTSUKA-2018_039913

PATIENT
  Age: 11 Year
  Sex: Male

DRUGS (6)
  1. ABILIFY [Suspect]
     Active Substance: ARIPIPRAZOLE
     Dosage: 0.5 TABLET (1.5 MG), QD
     Route: 048
     Dates: start: 20181206, end: 20181224
  2. ABILIFY [Suspect]
     Active Substance: ARIPIPRAZOLE
     Indication: AUTISM SPECTRUM DISORDER
     Dosage: 1 TABLET (1 MG), QD
     Route: 048
     Dates: start: 20181225
  3. ZITHROMAC [Suspect]
     Active Substance: AZITHROMYCIN DIHYDRATE
     Indication: PRODUCT USED FOR UNKNOWN INDICATION
     Dosage: UNK
     Route: 048
     Dates: start: 20181031, end: 20181101
  4. MIDODRINE HYDROCHLORIDE. [Concomitant]
     Active Substance: MIDODRINE HYDROCHLORIDE
     Indication: ORTHOSTATIC INTOLERANCE
     Dosage: 2 DF, QD
     Route: 048
     Dates: start: 20160330
  5. ABILIFY [Suspect]
     Active Substance: ARIPIPRAZOLE
     Indication: AUTISM SPECTRUM DISORDER
     Dosage: 1 TABLET (3 MG), QD
     Route: 048
     Dates: start: 20180618, end: 20181205
  6. ABILIFY [Suspect]
     Active Substance: ARIPIPRAZOLE
     Dosage: 0.5 TABLET (1.5 MG), QD
     Route: 048
     Dates: start: 20180423, end: 20180617

REACTIONS (3)
  - Drug dose titration not performed [Unknown]
  - Bronchitis mycoplasmal [Unknown]
  - Hepatic enzyme increased [Not Recovered/Not Resolved]

NARRATIVE: CASE EVENT DATE: 20180820
